FAERS Safety Report 13873098 (Version 1)
Quarter: 2017Q3

REPORT INFORMATION
  Report Type: Spontaneous
  Country: US (occurrence: US)
  Receive Date: 20170816
  Receipt Date: 20170816
  Transmission Date: 20171127
  Serious: Yes (Other)
  Sender: FDA-Public Use
  Company Number: US-TEVA-797928USA

PATIENT
  Sex: Female

DRUGS (2)
  1. TOLTERODINE [Suspect]
     Active Substance: TOLTERODINE
     Route: 065
  2. TOLTERODINE [Suspect]
     Active Substance: TOLTERODINE
     Indication: BLADDER SPASM
     Route: 065
     Dates: start: 20170807

REACTIONS (5)
  - Headache [Unknown]
  - Throat tightness [Unknown]
  - Dry throat [Unknown]
  - Product use issue [Unknown]
  - Altered state of consciousness [Unknown]

NARRATIVE: CASE EVENT DATE: 20170807
